FAERS Safety Report 20812021 (Version 2)
Quarter: 2022Q3

REPORT INFORMATION
  Report Type: Report from Study
  Country: CA (occurrence: CA)
  Receive Date: 20220511
  Receipt Date: 20220705
  Transmission Date: 20221026
  Serious: Yes (Other)
  Sender: FDA-Public Use
  Company Number: CA-JNJFOC-20220510260

PATIENT
  Age: 37 Year
  Sex: Female
  Weight: 63 kg

DRUGS (1)
  1. REMICADE [Suspect]
     Active Substance: INFLIXIMAB
     Indication: Colitis ulcerative
     Dosage: ON 04-MAY-2022, THE PATIENT RECEIVED 04TH INFUSION FOR DOSE 500 MG AND PARTIAL MAYO COMPLETED.
     Route: 042
     Dates: start: 20211217

REACTIONS (3)
  - Colitis ulcerative [Not Recovered/Not Resolved]
  - Pain [Unknown]
  - SARS-CoV-2 test positive [Recovered/Resolved]

NARRATIVE: CASE EVENT DATE: 20220329
